FAERS Safety Report 22028407 (Version 1)
Quarter: 2023Q1

REPORT INFORMATION
  Report Type: Spontaneous
  Country: US (occurrence: None)
  Receive Date: 20230223
  Receipt Date: 20230223
  Transmission Date: 20230418
  Serious: No
  Sender: FDA-Public Use
  Company Number: US-ROCHE-3112185

PATIENT
  Age: 14 Year
  Sex: Male

DRUGS (3)
  1. NUTROPIN [Suspect]
     Active Substance: SOMATROPIN
     Indication: Hypopituitarism
     Dosage: NUTROPIN AQ NUSPIN 20 PEN
     Route: 058
     Dates: start: 20220601
  2. NUTROPIN [Suspect]
     Active Substance: SOMATROPIN
  3. FLONASE [Concomitant]
     Active Substance: FLUTICASONE PROPIONATE

REACTIONS (2)
  - Contusion [Unknown]
  - Injection site pain [Unknown]

NARRATIVE: CASE EVENT DATE: 20220601
